FAERS Safety Report 11244978 (Version 4)
Quarter: 2015Q4

REPORT INFORMATION
  Report Type: Report from Study
  Country: DE (occurrence: DE)
  Receive Date: 20150707
  Receipt Date: 20151124
  Transmission Date: 20160304
  Serious: Yes (Hospitalization, Other)
  Sender: FDA-Public Use
  Company Number: PHHO2015DE010335

PATIENT
  Age: 61 Year
  Sex: Male
  Weight: 68 kg

DRUGS (10)
  1. COTRIM D.S. [Concomitant]
     Active Substance: SULFAMETHOXAZOLE\TRIMETHOPRIM
     Indication: INFECTION PROPHYLAXIS
     Dosage: UNK, MO-WE-FR
     Route: 065
     Dates: start: 2014
  2. LBH589 [Suspect]
     Active Substance: PANOBINOSTAT
     Indication: MYELODYSPLASTIC SYNDROME
     Dosage: 20 MG, TID
     Route: 048
     Dates: start: 20150114, end: 20150526
  3. ERYPO [Concomitant]
     Indication: ANAEMIA
     Dosage: 30000 IU, UNK
     Route: 065
     Dates: start: 20150520
  4. TAVANIC [Concomitant]
     Active Substance: LEVOFLOXACIN
     Indication: INFECTION PROPHYLAXIS
     Dosage: 500 MG, QD (500MG-0-0)
     Route: 065
     Dates: start: 20150609
  5. LBH589 [Suspect]
     Active Substance: PANOBINOSTAT
     Indication: ACUTE MYELOID LEUKAEMIA
  6. FOLSAN [Concomitant]
     Active Substance: FOLIC ACID
     Indication: PROPHYLAXIS
     Dosage: 5 MG, (MO-THU)
     Route: 065
     Dates: start: 2014
  7. URSOFALK [Concomitant]
     Active Substance: URSODIOL
     Indication: PROPHYLAXIS
     Dosage: 200 MG, BID (200-0-200)
     Route: 065
     Dates: start: 2014
  8. FALVIN [Concomitant]
     Indication: PROPHYLAXIS
     Dosage: 5 MG, (MON-THU)
     Route: 065
     Dates: start: 2014
  9. ACICLOVIR [Concomitant]
     Active Substance: ACYCLOVIR
     Indication: PROPHYLAXIS
     Dosage: 400 MG, BID (400MG-0-400MG)
     Route: 065
     Dates: start: 2014
  10. CALCIUM ^SANDOZ^ [Concomitant]
     Active Substance: CALCIUM
     Indication: OSTEOPOROSIS PROPHYLAXIS
     Dosage: 1-0-1
     Route: 065
     Dates: start: 2014

REACTIONS (3)
  - Acute myocardial infarction [Recovered/Resolved with Sequelae]
  - Hyperthyroidism [Recovered/Resolved]
  - Troponin T increased [Recovering/Resolving]

NARRATIVE: CASE EVENT DATE: 20150601
